FAERS Safety Report 16250132 (Version 1)
Quarter: 2019Q2

REPORT INFORMATION
  Report Type: Spontaneous
  Country: US (occurrence: US)
  Receive Date: 20190429
  Receipt Date: 20190429
  Transmission Date: 20190711
  Serious: No
  Sender: FDA-Public Use
  Company Number: US-ABBVIE-18S-163-2449567-00

PATIENT
  Age: 76 Year
  Sex: Male

DRUGS (4)
  1. ASPIRIN. [Concomitant]
     Active Substance: ASPIRIN
     Indication: PRODUCT USED FOR UNKNOWN INDICATION
  2. PRAVASTATIN. [Concomitant]
     Active Substance: PRAVASTATIN
     Indication: BLOOD CHOLESTEROL INCREASED
  3. ANDROGEL [Suspect]
     Active Substance: TESTOSTERONE
     Indication: HORMONE REPLACEMENT THERAPY
     Route: 061
     Dates: start: 201611
  4. ZETIA [Concomitant]
     Active Substance: EZETIMIBE
     Indication: HYPERTENSION

REACTIONS (2)
  - Urticaria [Not Recovered/Not Resolved]
  - Product quality issue [Unknown]

NARRATIVE: CASE EVENT DATE: 201807
